FAERS Safety Report 6419733-0 (Version None)
Quarter: 2009Q4

REPORT INFORMATION
  Report Type: 
  Country: None (occurrence: None)
  Receive Date: 20091029
  Receipt Date: 20091025
  Transmission Date: 20100525
  Serious: Yes (Other)
  Sender: FDA-Public Use
  Company Number: US-AVENTIS-200919543US

PATIENT
  Sex: Male

DRUGS (2)
  1. LANTUS [Suspect]
     Dosage: DOSE: 90 U SPLIT DOSE AM AND PM
     Route: 058
  2. OPTICLIK (INSULIN INJECTION PEN) [Suspect]

REACTIONS (5)
  - CATARACT [None]
  - HAEMORRHAGE [None]
  - RETINAL DETACHMENT [None]
  - THROMBOSIS [None]
  - VISUAL IMPAIRMENT [None]
